FAERS Safety Report 6172612-9 (Version None)
Quarter: 2009Q2

REPORT INFORMATION
  Report Type: 
  Country: None (occurrence: None)
  Receive Date: 20090428
  Receipt Date: 20090414
  Transmission Date: 20091009
  Serious: Yes (Other)
  Sender: FDA-Public Use
  Company Number: 200904008

PATIENT
  Age: 61 Year
  Sex: Male
  Weight: 94.3482 kg

DRUGS (9)
  1. TESTIM [Suspect]
     Indication: HYPOGONADISM
     Dosage: 3/4 TUBE, DAILY, TRANSDERMAL
     Route: 062
  2. LORAZEPAM [Concomitant]
  3. ATACAND [Concomitant]
  4. ASACOL [Concomitant]
  5. ZANTAC [Concomitant]
  6. METHADONE HCL [Concomitant]
  7. PERCOCET [Concomitant]
  8. FLOMAX [Concomitant]
  9. ZOLOFT [Concomitant]

REACTIONS (1)
  - LIPOMA [None]
